FAERS Safety Report 26054959 (Version 1)
Quarter: 2025Q4

REPORT INFORMATION
  Report Type: Report from Study
  Country: US (occurrence: US)
  Receive Date: 20251117
  Receipt Date: 20251117
  Transmission Date: 20260117
  Serious: Yes (Hospitalization)
  Sender: ABBVIE
  Company Number: US-ABBVIE-6550180

PATIENT
  Age: 63 Year
  Sex: Female

DRUGS (1)
  1. VENCLEXTA [Suspect]
     Active Substance: VENETOCLAX
     Indication: Chloroma
     Route: 048
     Dates: start: 202508

REACTIONS (2)
  - Abdominal distension [Unknown]
  - Volvulus of small bowel [Unknown]

NARRATIVE: CASE EVENT DATE: 20250101
